FAERS Safety Report 14139605 (Version 2)
Quarter: 2017Q4

REPORT INFORMATION
  Report Type: Spontaneous
  Country: US (occurrence: US)
  Receive Date: 20171029
  Receipt Date: 20171205
  Transmission Date: 20180321
  Serious: Yes (Death, Other)
  Sender: FDA-Public Use
  Company Number: PHEH2017US034367

PATIENT
  Sex: Male

DRUGS (3)
  1. TAFINLAR [Suspect]
     Active Substance: DABRAFENIB MESYLATE
     Indication: MELANOSIS
     Route: 065
  2. MEKINIST [Suspect]
     Active Substance: TRAMETINIB DIMETHYL SULFOXIDE
     Indication: MELANOSIS
     Dosage: UNK
     Route: 065
  3. NAVITOCLAX [Suspect]
     Active Substance: NAVITOCLAX
     Indication: MELANOSIS
     Route: 065

REACTIONS (9)
  - Azotaemia [Fatal]
  - Tubulointerstitial nephritis [Unknown]
  - Toxicity to various agents [Fatal]
  - Mental status changes [Unknown]
  - Coma [Unknown]
  - Skin discolouration [Unknown]
  - Acute kidney injury [Fatal]
  - Blood creatinine increased [Unknown]
  - Cerebral haemorrhage [Unknown]
